FAERS Safety Report 6305502-9 (Version None)
Quarter: 2009Q3

REPORT INFORMATION
  Report Type: 
  Country: None (occurrence: None)
  Receive Date: 20090807
  Receipt Date: 20090722
  Transmission Date: 20100115
  Serious: Yes (Other)
  Sender: FDA-Public Use
  Company Number: 2009001687

PATIENT
  Age: 60 Year
  Sex: Male

DRUGS (6)
  1. TARCEVA [Suspect]
     Indication: PANCREATIC CARCINOMA
     Dosage: 100 MG, QD, ORAL
     Route: 048
     Dates: start: 20080918
  2. GEMCITABINE [Suspect]
     Indication: PANCREATIC CARCINOMA
     Dosage: INTRAVENOUS
     Route: 048
     Dates: start: 20080918
  3. ANEMET (DOLASETRON MESILATE) [Concomitant]
  4. METOCLOPRAMIDE HCL [Concomitant]
  5. DOLASETRON (DOLASETRON) [Concomitant]
  6. METOCLOPRAMIDE [Concomitant]

REACTIONS (1)
  - CATARACT [None]
